FAERS Safety Report 7900811-1 (Version None)
Quarter: 2011Q4

REPORT INFORMATION
  Report Type: 
  Country: None (occurrence: None)
  Receive Date: 20111108
  Receipt Date: 20111028
  Transmission Date: 20120403
  Serious: Yes (Other)
  Sender: FDA-Public Use
  Company Number: US-BAYER-2011-106897

PATIENT
  Age: 37 Year
  Sex: Female
  Weight: 66.667 kg

DRUGS (26)
  1. ACIPHEX [Concomitant]
     Indication: GASTROOESOPHAGEAL REFLUX DISEASE
     Dosage: UNK
     Dates: start: 20060101
  2. VALTREX [Concomitant]
     Indication: HEPATITIS INFECTIOUS MONONUCLEOSIS
     Dosage: UNK
     Dates: start: 20070101
  3. VITAMIN D [Concomitant]
     Indication: SUPPLEMENTATION THERAPY
     Dosage: UNK
     Dates: start: 20070101
  4. ASCORBIC ACID [Concomitant]
     Indication: VITAMIN SUPPLEMENTATION
     Dosage: UNK
     Dates: start: 20010101
  5. ALBUTEROL [Concomitant]
     Dosage: UNK
     Dates: start: 20070101
  6. AZITHROMYCIN [Concomitant]
     Indication: INFECTION
     Dosage: UNK
     Dates: start: 20010101, end: 20110101
  7. ZOLOFT [Concomitant]
     Indication: DEPRESSION
     Dosage: UNK
     Dates: start: 20070101
  8. SINGULAIR [Concomitant]
     Indication: ASTHMA
  9. MOBIC [Concomitant]
     Indication: PAIN
     Dosage: UNK
     Dates: start: 20010101, end: 20110101
  10. AMITRIPTYLINE HCL [Concomitant]
     Indication: DEPRESSION
     Dosage: UNK
     Dates: start: 20070101, end: 20110101
  11. COQ10 [Concomitant]
     Indication: SUPPLEMENTATION THERAPY
     Dosage: UNK
     Dates: start: 20070101
  12. FAMVIR [Concomitant]
     Indication: HEPATITIS INFECTIOUS MONONUCLEOSIS
     Dosage: UNK
     Dates: start: 20060101, end: 20080101
  13. NAPROXEN [Concomitant]
     Indication: PAIN
     Dosage: UNK
     Dates: start: 20010101, end: 20110101
  14. NYSTATIN [Concomitant]
     Indication: CANDIDIASIS
     Dosage: UNK
     Dates: start: 20070101, end: 20100101
  15. VITAMIN B COMPLEX CAP [Concomitant]
     Indication: SUPPLEMENTATION THERAPY
     Dosage: UNK
     Dates: start: 20070101
  16. YAZ [Suspect]
     Indication: CONTRACEPTION
     Dosage: UNK
     Dates: start: 20061201, end: 20080201
  17. YAZ [Suspect]
     Dosage: UNK
     Dates: start: 20081101, end: 20100301
  18. CIPRO [Concomitant]
     Dosage: UNK
     Dates: start: 20010101, end: 20110101
  19. SINGULAIR [Concomitant]
     Indication: MULTIPLE ALLERGIES
     Dosage: UNK
     Dates: start: 20010101
  20. ROBAXIN [Concomitant]
     Indication: PAIN
     Dosage: UNK
     Dates: start: 20070101
  21. GLUCOSAMINE SULFATE W/CHONDROITIN [Concomitant]
     Indication: SUPPLEMENTATION THERAPY
     Dosage: UNK
     Dates: start: 20020101
  22. CLARITHROMYCIN [Concomitant]
     Indication: INFECTION
     Dosage: UNK
     Dates: start: 20010101, end: 20110101
  23. MACROBID [Concomitant]
     Indication: INFECTION
     Dosage: UNK
     Dates: start: 20010101, end: 20110101
  24. MULTI-VITAMIN [Concomitant]
     Indication: SUPPLEMENTATION THERAPY
     Dosage: UNK
     Dates: start: 20010101
  25. IBUPROFEN [Concomitant]
     Indication: PAIN
     Dosage: UNK
     Dates: start: 20010101, end: 20110101
  26. CALCIUM [Concomitant]
     Indication: SUPPLEMENTATION THERAPY
     Dosage: UNK
     Dates: start: 20070101

REACTIONS (7)
  - PAIN [None]
  - CHOLELITHIASIS [None]
  - FATIGUE [None]
  - GALLBLADDER DISORDER [None]
  - CARDIAC DISORDER [None]
  - GASTROINTESTINAL DISORDER [None]
  - DYSPEPSIA [None]
